FAERS Safety Report 14313552 (Version 1)
Quarter: 2017Q4

REPORT INFORMATION
  Report Type: Report from Study
  Country: US (occurrence: US)
  Receive Date: 20171221
  Receipt Date: 20171221
  Transmission Date: 20180321
  Serious: Yes (Other)
  Sender: FDA-Public Use
  Company Number: US-PFIZER INC-2017543484

PATIENT
  Age: 30 Week

DRUGS (10)
  1. CALCIUM [Concomitant]
     Active Substance: CALCIUM
     Dosage: 77 MG/KG, DAILY
  2. VITAMIN D /00107901/ [Concomitant]
     Active Substance: ERGOCALCIFEROL
     Dosage: 478 IU, DAILY
  3. PHOSPHORUS [Concomitant]
     Active Substance: PHOSPHORUS
     Dosage: 59 MG/KG, DAILY
  4. ALDACTONE [Concomitant]
     Active Substance: SPIRONOLACTONE
     Dosage: 1 MG, DAILY
  5. FUROSEMIDE. [Suspect]
     Active Substance: FUROSEMIDE
     Dosage: 5.7 MG/KG, DAILY
  6. CALCIUM [Concomitant]
     Active Substance: CALCIUM
     Dosage: 166 MG/KG, DAILY
  7. MAGNESIUM [Concomitant]
     Active Substance: MAGNESIUM
     Dosage: UNK
  8. FUROSEMIDE. [Suspect]
     Active Substance: FUROSEMIDE
     Indication: COR PULMONALE
     Dosage: 6.0 MG/KG, DAILY
  9. VITAMIN D /00107901/ [Concomitant]
     Active Substance: ERGOCALCIFEROL
     Dosage: 659 IU, DAILY
  10. PHOSPHORUS [Concomitant]
     Active Substance: PHOSPHORUS
     Dosage: 83 MG/KG, DAILY

REACTIONS (3)
  - Hypercalciuria [Unknown]
  - Osteopenia [Unknown]
  - Hyperparathyroidism [Unknown]
